FAERS Safety Report 23987121 (Version 1)
Quarter: 2024Q2

REPORT INFORMATION
  Report Type: Spontaneous
  Country: US (occurrence: None)
  Receive Date: 20240618
  Receipt Date: 20240618
  Transmission Date: 20240716
  Serious: Yes (Other)
  Sender: FDA-Public Use
  Company Number: None

PATIENT
  Age: 50 Year
  Sex: Male
  Weight: 89.1 kg

DRUGS (2)
  1. TRELEGY ELLIPTA [Suspect]
     Active Substance: FLUTICASONE FUROATE\UMECLIDINIUM BROMIDE\VILANTEROL TRIFENATATE
     Indication: Asthma
     Dosage: OTHER QUANTITY : 1 INHALATION(S)?FREQUENCY : DAILY?
     Route: 055
     Dates: start: 20240617, end: 20240618
  2. Albuterol rescue inhaler [Concomitant]

REACTIONS (5)
  - Fall [None]
  - Seizure [None]
  - Loss of consciousness [None]
  - Eye movement disorder [None]
  - Unresponsive to stimuli [None]

NARRATIVE: CASE EVENT DATE: 20240618
